FAERS Safety Report 9994992 (Version 1)
Quarter: 2014Q1

REPORT INFORMATION
  Report Type: Spontaneous
  Country: US (occurrence: None)
  Receive Date: 20140218
  Receipt Date: 20140218
  Transmission Date: 20141002
  Serious: Yes (Other)
  Sender: FDA-Public Use
  Company Number: 1000051960

PATIENT
  Age: 55 Year
  Sex: Female

DRUGS (1)
  1. VIIBRYD [Suspect]
     Indication: DEPRESSION
     Dosage: 10 MG, 1 IN 1 D
     Route: 048
     Dates: start: 20131128, end: 20131204

REACTIONS (2)
  - Nausea [None]
  - Diarrhoea [None]
